FAERS Safety Report 8855453 (Version 2)
Quarter: 2012Q4

REPORT INFORMATION
  Report Type: 
  Country: US (occurrence: US)
  Receive Date: 20121023
  Receipt Date: 20121031
  Transmission Date: 20130627
  Serious: Yes (Other)
  Sender: FDA-Public Use
  Company Number: US-AMGEN-USASP2012059388

PATIENT
  Age: 23 Year
  Sex: Female
  Weight: 45.35 kg

DRUGS (14)
  1. ENBREL [Suspect]
     Indication: ANKYLOSING SPONDYLITIS
     Dosage: 50 mg, qwk
     Route: 058
     Dates: start: 201208, end: 201210
  2. PREDNISOLONE ACETATE [Concomitant]
     Dosage: UNK
     Dates: start: 20121004
  3. CYCLOPENTOLATE HCL EYE DROPS [Concomitant]
     Dosage: UNK
     Dates: start: 20121004
  4. REMICADE [Concomitant]
     Dosage: 100 mg, 5 mg/kg 0 6 weeks after loading doses
     Dates: start: 20121004
  5. METHOTREXATE SODIUM [Concomitant]
     Dosage: 2.5 mg, qwk
     Dates: start: 20120904
  6. MULTIVITAMIN                       /00097801/ [Concomitant]
     Dosage: UNK
     Dates: start: 20120815
  7. B COMPLEX WITH VIT C [Concomitant]
     Dosage: UNK
     Dates: start: 20120815
  8. FISH OIL [Concomitant]
     Dosage: UNK
     Dates: start: 20120815
  9. DICLOFENAC SODIUM [Concomitant]
     Dosage: UNK
     Dates: start: 20120815
  10. NUVARING [Concomitant]
     Dosage: UNK
     Dates: start: 20120815
  11. BACLOFEN [Concomitant]
     Dosage: UNK
     Dates: start: 20120815
  12. IBUPROFEN [Concomitant]
     Dosage: UNK
     Dates: start: 20120815
  13. TYLENOL /00020001/ [Concomitant]
     Dosage: UNK
     Dates: start: 20120815
  14. ALEVE [Concomitant]
     Dosage: UNK
     Dates: start: 20120815

REACTIONS (16)
  - Iritis [Recovering/Resolving]
  - Visual impairment [Unknown]
  - Pruritus [Recovering/Resolving]
  - Headache [Not Recovered/Not Resolved]
  - Sneezing [Not Recovered/Not Resolved]
  - Poor quality sleep [Unknown]
  - Arthralgia [Unknown]
  - Musculoskeletal stiffness [Unknown]
  - Rash [Unknown]
  - Contusion [Unknown]
  - Skin lesion [Unknown]
  - Tenderness [Unknown]
  - Erythema [Unknown]
  - Dry skin [Unknown]
  - Injection site warmth [Unknown]
  - Injection site erythema [Recovering/Resolving]
